FAERS Safety Report 4738772-9 (Version None)
Quarter: 2005Q3

REPORT INFORMATION
  Report Type: 
  Country: None (occurrence: None)
  Receive Date: 20050808
  Receipt Date: 20050808
  Transmission Date: 20060218
  Serious: Yes (Other)
  Sender: FDA-Public Use
  Company Number: None

PATIENT
  Sex: Female
  Weight: 65.7716 kg

DRUGS (3)
  1. WELLBUTRIN [Suspect]
     Indication: ATTENTION DEFICIT/HYPERACTIVITY DISORDER
     Dosage: 150 MG 1 A DAY ORAL
     Route: 048
     Dates: start: 20030701, end: 20050228
  2. WELLBUTRIN [Suspect]
     Indication: DEPRESSION
     Dosage: 150 MG 1 A DAY ORAL
     Route: 048
     Dates: start: 20030701, end: 20050228
  3. ZOLOFT [Suspect]
     Indication: DEPRESSION
     Dosage: 25 MG 1 A DAY ORAL
     Route: 048
     Dates: start: 20011001, end: 20030630

REACTIONS (1)
  - ALOPECIA [None]
